FAERS Safety Report 8496300-9 (Version None)
Quarter: 2012Q3

REPORT INFORMATION
  Report Type: 
  Country: None (occurrence: None)
  Receive Date: 20120709
  Receipt Date: 20120626
  Transmission Date: 20120928
  Serious: No
  Sender: FDA-Public Use
  Company Number: US-ASTRAZENECA-2012SE42988

PATIENT
  Age: 35 Year
  Sex: Male

DRUGS (2)
  1. NUEDEXTA [Suspect]
     Indication: AFFECT LABILITY
     Route: 065
     Dates: start: 20120410, end: 20120412
  2. SEROQUEL [Suspect]
     Indication: DEPRESSED MOOD
     Route: 048

REACTIONS (1)
  - VISUAL IMPAIRMENT [None]
